FAERS Safety Report 23553499 (Version 2)
Quarter: 2024Q1

REPORT INFORMATION
  Report Type: Spontaneous
  Country: CA (occurrence: CA)
  Receive Date: 20240222
  Receipt Date: 20240229
  Transmission Date: 20240409
  Serious: Yes (Other)
  Sender: FDA-Public Use
  Company Number: CA-INDIVIOR US-INDV-143166-2024

PATIENT

DRUGS (2)
  1. SUBLOCADE [Suspect]
     Active Substance: BUPRENORPHINE
     Indication: Product used for unknown indication
     Dosage: UNK, QMO
     Route: 065
  2. SUBLOCADE [Suspect]
     Active Substance: BUPRENORPHINE
     Dosage: UNK, QMO (RESTARTED)
     Route: 065

REACTIONS (2)
  - Myocardial infarction [Recovered/Resolved]
  - Drug abuse [Unknown]
